FAERS Safety Report 7893242-4 (Version None)
Quarter: 2011Q4

REPORT INFORMATION
  Report Type: 
  Country: None (occurrence: None)
  Receive Date: 20111104
  Receipt Date: 20111031
  Transmission Date: 20120403
  Serious: Yes (Death, Hospitalization, Other)
  Sender: FDA-Public Use
  Company Number: PHHY2011NL76224

PATIENT
  Sex: Male

DRUGS (14)
  1. PANTOPRAZOLE [Concomitant]
     Dosage: 40 MG, DAILY
     Route: 065
  2. FENTANYL [Concomitant]
     Dosage: 25 UG,1X PER 3 DAYS
     Route: 065
  3. TEMAZEPAM [Concomitant]
     Dosage: 10 MG,1 X 1
     Route: 065
  4. PERINDOPRIL ERBUMINE [Concomitant]
     Dosage: 5 MG, DAILY
     Route: 065
  5. ZOMETA [Suspect]
     Dosage: 4 MG/ 5 ML
     Route: 065
     Dates: start: 20110728
  6. ZOMETA [Suspect]
     Dosage: 4 MG/ 5 ML
     Dates: start: 20110825
  7. ZOMETA [Suspect]
     Dosage: 4 MG/ 5 ML
     Dates: start: 20111013
  8. BICALUTAMIDE [Concomitant]
     Dosage: 50 MG, TID
     Route: 065
  9. AMOXICILLIN/ CLAVULUNIC ACID [Concomitant]
     Dosage: 500/125 3DD1
  10. ZOMETA [Suspect]
     Dosage: 4 MG/ 5 ML
     Dates: start: 20110603
  11. IPRATROPIUM BROMIDE [Concomitant]
     Dosage: 0.04 MG 2 TO 4X DAILY
  12. ASPIRIN [Concomitant]
     Dosage: 80 MG,
     Route: 065
  13. METOPROLOL TARTRATE [Concomitant]
     Dosage: 50 MG,2X1
     Route: 065
  14. LACTULOSE [Concomitant]
     Dosage: 2X 15ML

REACTIONS (10)
  - NEOPLASM PROGRESSION [None]
  - PYREXIA [None]
  - GENERAL PHYSICAL HEALTH DETERIORATION [None]
  - CONFUSIONAL STATE [None]
  - DEHYDRATION [None]
  - ASTHENIA [None]
  - CHRONIC OBSTRUCTIVE PULMONARY DISEASE [None]
  - CONSTIPATION [None]
  - TYPE 2 DIABETES MELLITUS [None]
  - NEOPLASM MALIGNANT [None]
